FAERS Safety Report 5328572-3 (Version None)
Quarter: 2007Q2

REPORT INFORMATION
  Report Type: 
  Country: None (occurrence: None)
  Receive Date: 20070518
  Receipt Date: 20070510
  Transmission Date: 20071010
  Serious: Yes (Other)
  Sender: FDA-Public Use
  Company Number: US-ABBOTT-07P-163-0367858-00

PATIENT
  Sex: Female
  Weight: 1.362 kg

DRUGS (1)
  1. DEPAKOTE [Suspect]
     Indication: DRUG EXPOSURE DURING PREGNANCY
     Route: 065

REACTIONS (7)
  - BIPOLAR DISORDER [None]
  - EMOTIONAL DISORDER [None]
  - HEADACHE [None]
  - LEARNING DISABILITY [None]
  - MASS [None]
  - PREMATURE BABY [None]
  - SMALL FOR DATES BABY [None]
